FAERS Safety Report 14310251 (Version 1)
Quarter: 2017Q4

REPORT INFORMATION
  Report Type: Spontaneous
  Country: DE (occurrence: DE)
  Receive Date: 20171220
  Receipt Date: 20171220
  Transmission Date: 20180321
  Serious: Yes (Hospitalization)
  Sender: FDA-Public Use
  Company Number: DE-ELI_LILLY_AND_COMPANY-DE201609006559

PATIENT
  Age: 68 Year
  Sex: Male

DRUGS (9)
  1. ERBITUX [Suspect]
     Active Substance: CETUXIMAB
     Indication: PRODUCT USED FOR UNKNOWN INDICATION
     Dosage: UNK UNK, UNKNOWN
     Route: 065
  2. BEVACIZUMAB. [Interacting]
     Active Substance: BEVACIZUMAB
     Indication: COLORECTAL CANCER METASTATIC
     Dosage: 350 MG
     Route: 042
     Dates: start: 20140812
  3. FLUOROURACIL. [Interacting]
     Active Substance: FLUOROURACIL
     Indication: COLORECTAL CANCER
     Dosage: 724 MG, 2/M
     Route: 040
     Dates: start: 20140812, end: 20141222
  4. FLUOROURACIL. [Interacting]
     Active Substance: FLUOROURACIL
     Dosage: 2500 MG, UNKNOWN
     Route: 041
     Dates: start: 20141222, end: 20141225
  5. FOLINIC ACID [Concomitant]
     Active Substance: LEUCOVORIN
     Indication: COLORECTAL CANCER
     Dosage: UNK UNK, UNKNOWN
     Route: 042
     Dates: start: 20140812, end: 20141222
  6. TIOTROPIUM BROMIDE [Concomitant]
     Active Substance: TIOTROPIUM BROMIDE
     Indication: LUNG DISORDER
     Dosage: 18 UG, QD
     Route: 048
  7. SALBUTAMOL [Concomitant]
     Active Substance: ALBUTEROL
     Indication: LUNG DISORDER
     Dosage: UNK UNK, UNKNOWN
     Route: 048
  8. IRINOTECAN [Concomitant]
     Active Substance: IRINOTECAN
     Indication: COLORECTAL CANCER
     Dosage: 325.8 MG, EVERY 3 WEEKS
     Route: 042
     Dates: start: 20140812, end: 20141203
  9. FLUOROURACIL. [Interacting]
     Active Substance: FLUOROURACIL
     Dosage: 4344 MG, 2/M
     Route: 041
     Dates: start: 20140812, end: 20141205

REACTIONS (4)
  - Diarrhoea [Recovering/Resolving]
  - Drug interaction [Unknown]
  - Constipation [Recovered/Resolved]
  - Drug hypersensitivity [Recovered/Resolved]

NARRATIVE: CASE EVENT DATE: 20140816
